FAERS Safety Report 4343284-0 (Version None)
Quarter: 2004Q1

REPORT INFORMATION
  Report Type: 
  Country: None (occurrence: None)
  Receive Date: 20040325
  Receipt Date: 20031125
  Transmission Date: 20041129
  Serious: No
  Sender: FDA-Public Use
  Company Number: USA031153414

PATIENT
  Age: 68 Year
  Sex: Female
  Weight: 57 kg

DRUGS (3)
  1. FORTEO [Suspect]
     Dates: start: 20030701
  2. CALTRATE (CALCIUM CARBONATE) [Concomitant]
  3. PREMARIN [Concomitant]

REACTIONS (4)
  - ARTHRALGIA [None]
  - ASTHENIA [None]
  - BONE PAIN [None]
  - PAIN IN EXTREMITY [None]
